FAERS Safety Report 5477929-9 (Version None)
Quarter: 2007Q4

REPORT INFORMATION
  Report Type: 
  Country: None (occurrence: None)
  Receive Date: 20071005
  Receipt Date: 20070926
  Transmission Date: 20080405
  Serious: Yes (Other)
  Sender: FDA-Public Use
  Company Number: PHBS2007JP16101

PATIENT
  Age: 53 Year
  Sex: Female

DRUGS (2)
  1. DICLOFENAC SODIUM [Suspect]
     Indication: ARTHRALGIA
     Route: 054
  2. PREDNISOLONE [Concomitant]
     Indication: ARTHRALGIA

REACTIONS (7)
  - BACK PAIN [None]
  - CARDIAC FAILURE [None]
  - DYSPNOEA EXERTIONAL [None]
  - MALAISE [None]
  - OEDEMA PERIPHERAL [None]
  - RASH GENERALISED [None]
  - THROMBOTIC THROMBOCYTOPENIC PURPURA [None]
